FAERS Safety Report 24760817 (Version 5)
Quarter: 2025Q1

REPORT INFORMATION
  Report Type: Spontaneous
  Country: US (occurrence: US)
  Receive Date: 20241220
  Receipt Date: 20250122
  Transmission Date: 20250409
  Serious: No
  Sender: SANDOZ
  Company Number: US-SANDOZ-SDZ2024US103613

PATIENT
  Sex: Male

DRUGS (2)
  1. ALBUTEROL SULFATE [Suspect]
     Active Substance: ALBUTEROL SULFATE
     Indication: Asthma
     Route: 055
     Dates: start: 20241212, end: 20241215
  2. ALBUTEROL SULFATE [Suspect]
     Active Substance: ALBUTEROL SULFATE
     Indication: Asthma
     Route: 055
     Dates: start: 20241212, end: 20241215

REACTIONS (5)
  - Circumstance or information capable of leading to medication error [Unknown]
  - Drug dose omission by device [Unknown]
  - Product packaging quantity issue [Unknown]
  - Device defective [Unknown]
  - Device malfunction [Unknown]
